FAERS Safety Report 20781415 (Version 2)
Quarter: 2022Q2

REPORT INFORMATION
  Report Type: Report from Study
  Country: US (occurrence: US)
  Receive Date: 20220504
  Receipt Date: 20220509
  Transmission Date: 20220721
  Serious: No
  Sender: FDA-Public Use
  Company Number: US-NOVARTISTESTPH-NVSC2022US101866

PATIENT
  Sex: Female

DRUGS (1)
  1. KESIMPTA [Suspect]
     Active Substance: OFATUMUMAB
     Indication: Multiple sclerosis
     Dosage: 0.4 ML, UNKNOWN
     Route: 065

REACTIONS (5)
  - Psoriasis [Unknown]
  - Vision blurred [Unknown]
  - Peripheral swelling [Unknown]
  - COVID-19 [Unknown]
  - Pyrexia [Unknown]
